FAERS Safety Report 7325728-5 (Version None)
Quarter: 2011Q1

REPORT INFORMATION
  Report Type: 
  Country: None (occurrence: None)
  Receive Date: 20110302
  Receipt Date: 20110218
  Transmission Date: 20110831
  Serious: Yes (Hospitalization)
  Sender: FDA-Public Use
  Company Number: JP-SANOFI-AVENTIS-2011SA011971

PATIENT
  Age: 68 Year
  Sex: Female

DRUGS (6)
  1. ELPLAT [Suspect]
     Route: 041
     Dates: start: 20100517, end: 20100517
  2. CAPECITABINE [Suspect]
     Indication: COLON CANCER
     Route: 048
     Dates: start: 20100423, end: 20100507
  3. AVASTIN [Suspect]
     Route: 041
     Dates: start: 20100517, end: 20100517
  4. ELPLAT [Suspect]
     Indication: COLON CANCER
     Route: 041
     Dates: start: 20100423, end: 20100423
  5. CAPECITABINE [Suspect]
     Route: 048
     Dates: start: 20100517, end: 20100531
  6. AVASTIN [Suspect]
     Indication: COLON CANCER
     Route: 041
     Dates: start: 20100523, end: 20100523

REACTIONS (1)
  - INTESTINAL PERFORATION [None]
